FAERS Safety Report 7580372-X (Version None)
Quarter: 2011Q2

REPORT INFORMATION
  Report Type: 
  Country: None (occurrence: None)
  Receive Date: 20110629
  Receipt Date: 20110616
  Transmission Date: 20111010
  Serious: Yes (Other)
  Sender: FDA-Public Use
  Company Number: FR-ROCHE-785933

PATIENT
  Sex: Female

DRUGS (6)
  1. BLINDED BI 201335 [Suspect]
     Indication: HEPATITIS C
     Dosage: DOSE BLINDED; FORM: KA
     Route: 048
     Dates: start: 20090320, end: 20090904
  2. LEVOTHYROXINE SODIUM [Concomitant]
     Indication: HYPERTHYROIDISM
     Route: 048
     Dates: start: 20060101, end: 20090609
  3. RIBAVIRIN [Suspect]
     Indication: HEPATITIS C
     Route: 048
     Dates: start: 20090320, end: 20100219
  4. LEVOTHYROXINE SODIUM [Concomitant]
     Route: 048
     Dates: start: 20090610, end: 20091122
  5. PULMICORT [Concomitant]
     Indication: COUGH
     Dosage: DAILY DOSE: 800 UG (400 UG), FORM OF ADMINISTRATION: KAI
     Route: 055
     Dates: start: 20090902
  6. PEGINTERFERON ALFA-2A [Suspect]
     Indication: HEPATITIS C
     Dosage: STRENGTH 180 UG/ML, FORM: LOI
     Route: 058
     Dates: start: 20090320, end: 20100219

REACTIONS (1)
  - PARKINSON'S DISEASE [None]
